FAERS Safety Report 19687143 (Version 1)
Quarter: 2021Q3

REPORT INFORMATION
  Report Type: Spontaneous
  Country: US (occurrence: US)
  Receive Date: 20210811
  Receipt Date: 20210811
  Transmission Date: 20211014
  Serious: No
  Sender: FDA-Public Use
  Company Number: US-AMGEN-USASP2021119750

PATIENT
  Age: 56 Year
  Sex: Female

DRUGS (6)
  1. BENADRYL [Concomitant]
     Active Substance: DIPHENHYDRAMINE HYDROCHLORIDE
     Dosage: 50 MILLIGRAM, Q2H
     Route: 042
     Dates: start: 20210730
  2. BENADRYL [Concomitant]
     Active Substance: DIPHENHYDRAMINE HYDROCHLORIDE
     Dosage: 100 MILLIGRAM
     Dates: start: 20210730
  3. NOVOLOG [Concomitant]
     Active Substance: INSULIN ASPART
  4. AVSOLA [Suspect]
     Active Substance: INFLIXIMAB-AXXQ
     Indication: CROHN^S DISEASE
     Dosage: UNK
     Route: 065
     Dates: start: 20210730
  5. POTASSIUM [Concomitant]
     Active Substance: POTASSIUM
  6. BENADRYL [Concomitant]
     Active Substance: DIPHENHYDRAMINE HYDROCHLORIDE
     Dosage: 25 MILLIGRAM
     Dates: start: 20210730

REACTIONS (6)
  - Feeling abnormal [Unknown]
  - Photophobia [Unknown]
  - Visual impairment [Unknown]
  - Pruritus [Not Recovered/Not Resolved]
  - Flushing [Recovering/Resolving]
  - Eye irritation [Not Recovered/Not Resolved]

NARRATIVE: CASE EVENT DATE: 20210730
